FAERS Safety Report 19750992 (Version 1)
Quarter: 2021Q3

REPORT INFORMATION
  Report Type: Spontaneous
  Country: US (occurrence: US)
  Receive Date: 20210826
  Receipt Date: 20210826
  Transmission Date: 20211014
  Serious: No
  Sender: FDA-Public Use
  Company Number: US-009507513-2108USA004909

PATIENT
  Age: 71 Year
  Sex: Male

DRUGS (1)
  1. STROMECTOL [Suspect]
     Active Substance: IVERMECTIN
     Indication: BED BUG INFESTATION
     Dosage: 200 MILLIGRAM TWICE
     Route: 048

REACTIONS (1)
  - Product use in unapproved indication [Unknown]
